FAERS Safety Report 6810864-X (Version None)
Quarter: 2010Q2

REPORT INFORMATION
  Report Type: 
  Country: None (occurrence: None)
  Receive Date: 20100630
  Receipt Date: 20080116
  Transmission Date: 20101027
  Serious: No
  Sender: FDA-Public Use
  Company Number: US-PFIZER INC-2008005871

PATIENT
  Sex: Male
  Weight: 71.8 kg

DRUGS (15)
  1. NICOTROL [Suspect]
     Indication: SMOKING CESSATION THERAPY
     Dates: start: 20070601
  2. FENTANYL [Concomitant]
  3. DIAZEPAM [Concomitant]
  4. SEROQUEL [Concomitant]
  5. LYRICA [Concomitant]
  6. GLYBURIDE [Concomitant]
  7. HYDRALAZINE HCL [Concomitant]
  8. METFORMIN HCL [Concomitant]
  9. OMEPRAZOLE [Concomitant]
  10. CYMBALTA [Concomitant]
  11. REMERON [Concomitant]
  12. HYDROCODONE [Concomitant]
  13. SOMA [Concomitant]
  14. INSULIN [Concomitant]
  15. ALL OTHER THERAPEUTIC PRODUCTS [Concomitant]

REACTIONS (3)
  - LACRIMATION INCREASED [None]
  - RHINORRHOEA [None]
  - STRESS [None]
